FAERS Safety Report 4870264-9 (Version None)
Quarter: 2005Q4

REPORT INFORMATION
  Report Type: 
  Country: None (occurrence: None)
  Receive Date: 20051228
  Receipt Date: 20051207
  Transmission Date: 20060501
  Serious: Yes (Other)
  Sender: FDA-Public Use
  Company Number: GB200512001219

PATIENT
  Age: 64 Year
  Sex: Female
  Weight: 52 kg

DRUGS (2)
  1. FORSTEO (TERIPARATIDE) [Suspect]
     Dosage: 20 UG, SUBCUTANEOUS
     Route: 058
     Dates: start: 20050926, end: 20050929
  2. CALCIUM CARBONATE (CALCIUM CARBONATE) [Concomitant]

REACTIONS (5)
  - ABASIA [None]
  - ERYTHEMA [None]
  - FEELING HOT [None]
  - OEDEMA PERIPHERAL [None]
  - PARAESTHESIA [None]
